FAERS Safety Report 8362378-6 (Version None)
Quarter: 2012Q2

REPORT INFORMATION
  Report Type: 
  Country: None (occurrence: None)
  Receive Date: 20120516
  Receipt Date: 20120508
  Transmission Date: 20120825
  Serious: No
  Sender: FDA-Public Use
  Company Number: US-BIOGENIDEC-2011BI048193

PATIENT
  Age: 59 Year
  Sex: Female

DRUGS (1)
  1. TYSABRI [Suspect]
     Indication: MULTIPLE SCLEROSIS
     Route: 042
     Dates: start: 20100922

REACTIONS (8)
  - NEUROPATHY PERIPHERAL [None]
  - PAIN [None]
  - HEMIPARESIS [None]
  - MUSCLE SPASMS [None]
  - DEPRESSION [None]
  - FALL [None]
  - MUSCULAR WEAKNESS [None]
  - ORAL MUCOSAL BLISTERING [None]
